FAERS Safety Report 19083757 (Version 6)
Quarter: 2024Q1

REPORT INFORMATION
  Report Type: Spontaneous
  Country: DE (occurrence: DE)
  Receive Date: 20210401
  Receipt Date: 20240308
  Transmission Date: 20240410
  Serious: Yes (Other)
  Sender: FDA-Public Use
  Company Number: DE-ARISTO PHARMA-CODE-LEVOM-LORA-MORP-PREG-SERT202103081

PATIENT
  Age: 34 Year
  Sex: Male

DRUGS (16)
  1. MIRTAZAPINE [Suspect]
     Active Substance: MIRTAZAPINE
     Dosage: UNK
     Route: 048
  2. TEMAZEPAM [Suspect]
     Active Substance: TEMAZEPAM
     Dosage: UNK
  3. LEVOMETHADONE [Suspect]
     Active Substance: LEVOMETHADONE
     Dosage: UNK
  4. PREGABALIN [Suspect]
     Active Substance: PREGABALIN
     Dosage: UNK
  5. SERTRALINE [Suspect]
     Active Substance: SERTRALINE HYDROCHLORIDE
     Dosage: UNK
  6. MORPHINE [Suspect]
     Active Substance: MORPHINE
     Dosage: UNK
  7. CODEINE [Suspect]
     Active Substance: CODEINE
     Dosage: UNK
  8. OXAZEPAM [Suspect]
     Active Substance: OXAZEPAM
     Dosage: UNK
  9. ALPRAZOLAM [Suspect]
     Active Substance: ALPRAZOLAM
     Dosage: UNK
  10. DIAZEPAM [Suspect]
     Active Substance: DIAZEPAM
     Dosage: UNK
  11. NORDAZEPAM [Suspect]
     Active Substance: NORDAZEPAM
     Dosage: UNK
  12. LORAZEPAM [Suspect]
     Active Substance: LORAZEPAM
     Dosage: UNK
  13. COCAINE [Suspect]
     Active Substance: COCAINE
     Dosage: UNK
  14. CANNABINOL [Suspect]
     Active Substance: CANNABINOL
     Dosage: REPORTED AS ^TETRAHYDROCANNABINOL (THC)^
  15. HERBALS\TETRAHYDROCANNABINOL UNSPECIFIED [Suspect]
     Active Substance: HERBALS\TETRAHYDROCANNABINOL UNSPECIFIED
  16. BENZOYLECGONINE [Suspect]
     Active Substance: BENZOYLECGONINE
     Indication: Product used for unknown indication
     Dosage: UNK
     Route: 065

REACTIONS (7)
  - Substance abuse [Unknown]
  - Bradykinesia [Unknown]
  - Gait disturbance [Unknown]
  - Vestibular disorder [Unknown]
  - Dysarthria [Unknown]
  - Restlessness [Unknown]
  - Drug dependence [Unknown]
